FAERS Safety Report 9114066 (Version 1)
Quarter: 2013Q1

REPORT INFORMATION
  Report Type: Spontaneous
  Country: US (occurrence: US)
  Receive Date: 20130208
  Receipt Date: 20130208
  Transmission Date: 20140127
  Serious: Yes (Other)
  Sender: FDA-Public Use
  Company Number: US-PFIZER INC-2011097471

PATIENT
  Age: 57 Year
  Sex: Female
  Weight: 134 kg

DRUGS (11)
  1. LYRICA [Suspect]
     Indication: NEURALGIA
     Dosage: 150 MG, 3X/DAY
     Route: 048
     Dates: start: 2007
  2. LYRICA [Suspect]
     Indication: NEUROPATHY PERIPHERAL
     Dosage: 300 MG, 3X/DAY
     Route: 048
     Dates: start: 2008
  3. LYRICA [Suspect]
     Indication: FIBROMYALGIA
     Dosage: 300 MG, 4X/DAY
  4. LYRICA [Suspect]
     Indication: DIABETIC NEUROPATHY
  5. CYMBALTA [Concomitant]
     Dosage: 30 MG, UNK
  6. CYMBALTA [Concomitant]
     Dosage: 30 MG, 2X/DAY
  7. LORTAB [Concomitant]
     Indication: OSTEOPOROSIS
     Dosage: UNK
  8. SOMA [Concomitant]
     Indication: OSTEOPOROSIS
     Dosage: UNK
  9. VOLTAREN [Concomitant]
     Indication: OSTEOPOROSIS
     Dosage: UNK
  10. SEROQUEL [Concomitant]
     Dosage: UNK
  11. MILK THISTLE [Concomitant]
     Indication: DETOXIFICATION
     Dosage: UNK

REACTIONS (10)
  - Arthropathy [Unknown]
  - Osteoporosis [Unknown]
  - Overweight [Unknown]
  - Blood cholesterol decreased [Unknown]
  - Myalgia [Unknown]
  - Dizziness [Unknown]
  - Constipation [Unknown]
  - Intentional drug misuse [Unknown]
  - Weight decreased [Unknown]
  - Drug ineffective [Unknown]
